FAERS Safety Report 8773316 (Version 3)
Quarter: 2012Q4

REPORT INFORMATION
  Report Type: Report from Study
  Country: JP (occurrence: JP)
  Receive Date: 20120907
  Receipt Date: 20121119
  Transmission Date: 20130627
  Serious: Yes (Hospitalization, Other)
  Sender: FDA-Public Use
  Company Number: JP-VERTEX PHARMACEUTICAL INC.-AE-2012-003361

PATIENT
  Age: 54 Year
  Sex: Male

DRUGS (15)
  1. VX-950 (TELAPREVIR) [Suspect]
     Indication: CHRONIC HEPATITIS C
     Dosage: 2250 mg, qd
     Route: 048
     Dates: start: 20120229, end: 20120304
  2. VX-950 (TELAPREVIR) [Suspect]
     Dosage: 1500 UNK, UNK
     Route: 048
     Dates: start: 20120305, end: 20120506
  3. RIBAVIRIN [Suspect]
     Indication: CHRONIC HEPATITIS C
     Dosage: 800 mg, qd
     Route: 048
     Dates: start: 20120229
  4. RIBAVIRIN [Suspect]
     Dosage: 400 mg, qd
     Route: 048
     Dates: end: 20120501
  5. RIBAVIRIN [Suspect]
     Dosage: 300 mg, qd
     Route: 048
     Dates: start: 20120502, end: 20120515
  6. RIBAVIRIN [Suspect]
     Dosage: 200 mg, qd
     Route: 048
     Dates: start: 20120516, end: 20120619
  7. RIBAVIRIN [Suspect]
     Dosage: 400 mg, qd
     Route: 048
     Dates: start: 20120620, end: 20120626
  8. RIBAVIRIN [Suspect]
     Dosage: 200 mg, qd
     Route: 048
     Dates: start: 20120711, end: 20120717
  9. RIBAVIRIN [Suspect]
     Dosage: 400 mg, qd
     Route: 048
     Dates: start: 20120718, end: 20120814
  10. PEG INTRON [Suspect]
     Indication: CHRONIC HEPATITIS C
     Dosage: 1.5 ?g/kg, qw
     Route: 058
     Dates: start: 20120229, end: 20120620
  11. PEG INTRON [Suspect]
     Dosage: 1.5 ?g/kg, qw
     Route: 058
     Dates: start: 20120711, end: 20120808
  12. PARIET [Concomitant]
     Dosage: 10 mg, qd
     Route: 048
     Dates: start: 20120302, end: 20120814
  13. PARIET [Concomitant]
     Dosage: 10 mg, qd
     Route: 048
     Dates: start: 20120302, end: 20120814
  14. MICARDIS [Concomitant]
     Dosage: 40 mg, qd
     Route: 048
     Dates: end: 20120303
  15. MUCOSOLVAN [Concomitant]
     Dosage: 45 mg, qd
     Route: 048
     Dates: start: 20120620, end: 20120626

REACTIONS (2)
  - Blood urea increased [Recovered/Resolved]
  - Cerebral infarction [Recovered/Resolved]
